FAERS Safety Report 24313836 (Version 3)
Quarter: 2024Q4

REPORT INFORMATION
  Report Type: Report from Study
  Country: US (occurrence: US)
  Receive Date: 20240912
  Receipt Date: 20241030
  Transmission Date: 20250115
  Serious: Yes (Hospitalization)
  Sender: ABBVIE
  Company Number: US-ABBVIE-5916041

PATIENT
  Age: 52 Year
  Sex: Female

DRUGS (2)
  1. HUMIRA [Suspect]
     Active Substance: ADALIMUMAB
     Indication: Crohn^s disease
     Route: 058
     Dates: start: 20171031
  2. HUMIRA [Suspect]
     Active Substance: ADALIMUMAB
     Dosage: END DATE 2017
     Route: 058
     Dates: start: 20170407

REACTIONS (4)
  - Abscess rupture [Not Recovered/Not Resolved]
  - Weight decreased [Unknown]
  - Colonic abscess [Unknown]
  - Gastrointestinal disorder [Unknown]

NARRATIVE: CASE EVENT DATE: 20240101
